FAERS Safety Report 8480759-7 (Version None)
Quarter: 2012Q2

REPORT INFORMATION
  Report Type: 
  Country: None (occurrence: None)
  Receive Date: 20120620
  Receipt Date: 20120611
  Transmission Date: 20120825
  Serious: Yes (Hospitalization)
  Sender: FDA-Public Use
  Company Number: 2012SP032172

PATIENT
  Age: 59 Year
  Sex: Female

DRUGS (3)
  1. PANTOPRAZOLE [Concomitant]
  2. PEG-INTRON [Suspect]
     Indication: HEPATITIS C
     Dosage: 80 MCG; QW; SC
     Route: 058
     Dates: start: 20120124, end: 20120606
  3. PRIMPERAN TAB [Concomitant]

REACTIONS (2)
  - PANIC ATTACK [None]
  - MENTAL DISORDER [None]
